FAERS Safety Report 5248736-7 (Version None)
Quarter: 2007Q1

REPORT INFORMATION
  Report Type: 
  Country: None (occurrence: None)
  Receive Date: 20070223
  Receipt Date: 20070214
  Transmission Date: 20070707
  Serious: No
  Sender: FDA-Public Use
  Company Number: 2007-154542-NL

PATIENT
  Age: 47 Year
  Sex: Male

DRUGS (12)
  1. NANDROLONE DECANOATE [Suspect]
     Indication: HIV TEST POSITIVE
     Dosage: DF INTRAMUSCULAR
     Route: 030
     Dates: start: 19990301
  2. BLINDED THERAPY [Suspect]
     Indication: HIV TEST POSITIVE
     Dosage: DF ORAL
     Route: 048
     Dates: start: 20050721, end: 20070123
  3. PYRIMETHAMINE TAB [Concomitant]
  4. SODIUM BICARBONATE [Concomitant]
  5. LOSARTAN POSTASSIUM [Concomitant]
  6. ALENDRONIC ACID [Concomitant]
  7. LOPERAMIDE HCL [Concomitant]
  8. TESTOSTERONE [Concomitant]
  9. TADALAFIL [Concomitant]
  10. TEMAZEPAM [Concomitant]
  11. ATOVAQUONE [Concomitant]
  12. FOLINIC ACID [Concomitant]

REACTIONS (3)
  - FATIGUE [None]
  - HEPATIC FUNCTION ABNORMAL [None]
  - LIVER FUNCTION TEST ABNORMAL [None]
